FAERS Safety Report 5391388-6 (Version None)
Quarter: 2007Q3

REPORT INFORMATION
  Report Type: 
  Country: None (occurrence: None)
  Receive Date: 20070719
  Receipt Date: 20070712
  Transmission Date: 20080115
  Serious: Yes (Hospitalization)
  Sender: FDA-Public Use
  Company Number: HQWYE704120JUN07

PATIENT
  Sex: Female

DRUGS (5)
  1. ANGE-28 [Suspect]
     Indication: CONTRACEPTION
     Route: 048
     Dates: start: 20070215, end: 20070618
  2. ANGE-28 [Suspect]
     Indication: DYSMENORRHOEA
  3. PL [Suspect]
     Indication: NASOPHARYNGITIS
     Dosage: UNKNOWN
     Route: 048
     Dates: start: 20070518, end: 20070521
  4. LOXONIN [Suspect]
     Indication: NASOPHARYNGITIS
     Dosage: 3 TAB DAILY
     Route: 048
     Dates: start: 20070518, end: 20070521
  5. LEVOFLOXACIN [Suspect]
     Indication: NASOPHARYNGITIS
     Dosage: 3 TAB DAILY
     Route: 048
     Dates: start: 20070518, end: 20070521

REACTIONS (2)
  - ANAEMIA [None]
  - METRORRHAGIA [None]
